FAERS Safety Report 22657278 (Version 1)
Quarter: 2023Q2

REPORT INFORMATION
  Report Type: Report from Study
  Country: PL (occurrence: PL)
  Receive Date: 20230630
  Receipt Date: 20230630
  Transmission Date: 20230722
  Serious: Yes (Hospitalization)
  Sender: FDA-Public Use
  Company Number: PL-Gedeon Richter Plc.-2023_GR_006000

PATIENT
  Age: 26 Year
  Sex: Female

DRUGS (2)
  1. LEVONORGESTREL [Suspect]
     Active Substance: LEVONORGESTREL
     Indication: Heavy menstrual bleeding
     Dosage: 52 MG SINGLE, AT AN INITIAL RELEASE RATE OF 20 MICROGRAM PER 24 HOURS
     Route: 015
     Dates: start: 202105
  2. LEVONORGESTREL [Suspect]
     Active Substance: LEVONORGESTREL
     Indication: Contraception

REACTIONS (2)
  - Ovarian disorder [Unknown]
  - Abdominal pain [Unknown]

NARRATIVE: CASE EVENT DATE: 20220901
